FAERS Safety Report 12390401 (Version 1)
Quarter: 2016Q2

REPORT INFORMATION
  Report Type: Report from Study
  Country: AU (occurrence: AU)
  Receive Date: 20160520
  Receipt Date: 20160520
  Transmission Date: 20160815
  Serious: Yes (Other)
  Sender: FDA-Public Use
  Company Number: AU-BIOGEN-2016BI00238643

PATIENT
  Age: 62 Year
  Sex: Female

DRUGS (1)
  1. TECFIDERA [Suspect]
     Active Substance: DIMETHYL FUMARATE
     Indication: MULTIPLE SCLEROSIS
     Dosage: MAINTENANCE DOSE
     Route: 048
     Dates: start: 20140913

REACTIONS (4)
  - Skin cancer [Not Recovered/Not Resolved]
  - Multiple sclerosis [Unknown]
  - Fatigue [Unknown]
  - Mental fatigue [Unknown]

NARRATIVE: CASE EVENT DATE: 201603
